FAERS Safety Report 14403245 (Version 1)
Quarter: 2018Q1

REPORT INFORMATION
  Report Type: Spontaneous
  Country: US (occurrence: US)
  Receive Date: 20180116
  Receipt Date: 20180116
  Transmission Date: 20180509
  Serious: Yes (Hospitalization)
  Sender: FDA-Public Use
  Company Number: None

PATIENT
  Age: 15 Year
  Sex: Female
  Weight: 56.24 kg

DRUGS (2)
  1. LEVETIRACETAM XR [Suspect]
     Active Substance: LEVETIRACETAM
     Indication: SEIZURE
     Dosage: DATES OF USE -  PRIOR TO 2015
     Route: 048
  2. LEVETIRACETAM XR [Suspect]
     Active Substance: LEVETIRACETAM
     Indication: STATUS EPILEPTICUS
     Dosage: DATES OF USE -  PRIOR TO 2015
     Route: 048

REACTIONS (3)
  - Product substitution issue [None]
  - Seizure [None]
  - Condition aggravated [None]
